FAERS Safety Report 18689559 (Version 5)
Quarter: 2021Q1

REPORT INFORMATION
  Report Type: Spontaneous
  Country: US (occurrence: US)
  Receive Date: 20201231
  Receipt Date: 20210211
  Transmission Date: 20210419
  Serious: No
  Sender: FDA-Public Use
  Company Number: US-ASTRAZENECA-2020SF72667

PATIENT
  Age: 21032 Day
  Sex: Female
  Weight: 69.9 kg

DRUGS (2)
  1. BYDUREON [Suspect]
     Active Substance: EXENATIDE
     Indication: TYPE 2 DIABETES MELLITUS
     Route: 058
     Dates: start: 20201212
  2. CAMPHO?PHENIQUE [Concomitant]
     Active Substance: CAMPHOR\PHENOL
     Indication: PRURITUS
     Route: 065

REACTIONS (5)
  - Wrong technique in device usage process [Unknown]
  - Injection site nodule [Unknown]
  - Product compounding quality issue [Unknown]
  - Injection site pruritus [Recovered/Resolved]
  - Injection site mass [Unknown]

NARRATIVE: CASE EVENT DATE: 20201218
